FAERS Safety Report 4819902-7 (Version None)
Quarter: 2005Q4

REPORT INFORMATION
  Report Type: 
  Country: None (occurrence: None)
  Receive Date: 20051103
  Receipt Date: 20050405
  Transmission Date: 20060501
  Serious: Yes (Hospitalization, Disabling, Other)
  Sender: FDA-Public Use
  Company Number: US-MERCK-0504USA00659

PATIENT
  Age: 47 Year
  Sex: Female
  Weight: 89 kg

DRUGS (12)
  1. VIOXX [Suspect]
     Indication: PAIN IN EXTREMITY
     Route: 048
     Dates: start: 20010201, end: 20041001
  2. VIOXX [Suspect]
     Indication: SWELLING
     Route: 048
     Dates: start: 20010201, end: 20041001
  3. LISINOPRIL [Concomitant]
     Indication: HYPERTENSION
     Route: 048
     Dates: start: 20040301
  4. PROZAC [Concomitant]
     Indication: DEPRESSION
     Route: 048
     Dates: start: 19970101
  5. PREMARIN [Concomitant]
     Indication: HORMONE REPLACEMENT THERAPY
     Route: 048
     Dates: start: 19950101
  6. ZOCOR [Concomitant]
     Indication: BLOOD CHOLESTEROL INCREASED
     Route: 048
     Dates: start: 20020101
  7. ELAVIL [Concomitant]
     Indication: MIGRAINE
     Route: 048
     Dates: start: 19830101
  8. ELAVIL [Concomitant]
     Indication: SLEEP DISORDER
     Route: 048
     Dates: start: 19830101
  9. MOBIC [Suspect]
     Indication: PAIN
     Route: 048
     Dates: start: 20030101
  10. NEURONTIN [Suspect]
     Indication: PAIN
     Route: 048
     Dates: start: 20010101, end: 20040101
  11. BACLOFEN [Suspect]
     Indication: PAIN
     Route: 048
     Dates: start: 20010101
  12. FLEXERIL [Suspect]
     Route: 048

REACTIONS (16)
  - BLOOD CHOLESTEROL INCREASED [None]
  - CEREBROVASCULAR ACCIDENT [None]
  - DEPRESSION [None]
  - DRUG HYPERSENSITIVITY [None]
  - DYSPEPSIA [None]
  - DYSPNOEA [None]
  - FEMUR FRACTURE [None]
  - GASTROOESOPHAGEAL REFLUX DISEASE [None]
  - HYPOAESTHESIA [None]
  - JOINT DISLOCATION [None]
  - MIGRAINE [None]
  - MYOCARDIAL INFARCTION [None]
  - NAUSEA [None]
  - POLYTRAUMATISM [None]
  - RHEUMATOID ARTHRITIS [None]
  - TRANSIENT ISCHAEMIC ATTACK [None]
